FAERS Safety Report 21816713 (Version 1)
Quarter: 2023Q1

REPORT INFORMATION
  Report Type: Spontaneous
  Country: US (occurrence: US)
  Receive Date: 20230104
  Receipt Date: 20230104
  Transmission Date: 20230417
  Serious: No
  Sender: FDA-Public Use
  Company Number: US-PHARMING-PHAUS2023000003

PATIENT

DRUGS (12)
  1. RUCONEST [Suspect]
     Active Substance: HUMAN C1-ESTERASE INHIBITOR
     Indication: Hypogammaglobulinaemia
     Dosage: 4200 IU, TWICE WEEKLY
     Route: 042
     Dates: start: 20191115
  2. BIFIDOBACTERIUM ANIMALIS LACTIS [Concomitant]
     Active Substance: BIFIDOBACTERIUM ANIMALIS LACTIS
     Indication: Product used for unknown indication
  3. EPINEPHRINE [Concomitant]
     Active Substance: EPINEPHRINE
     Indication: Product used for unknown indication
  4. IBUPROFEN [Concomitant]
     Active Substance: IBUPROFEN
     Indication: Product used for unknown indication
  5. NORETHINDRONE                      /00044901/ [Concomitant]
     Indication: Product used for unknown indication
  6. DOCUSATE SODIUM [Concomitant]
     Active Substance: DOCUSATE SODIUM
     Indication: Product used for unknown indication
  7. ADDERALL [Concomitant]
     Active Substance: AMPHETAMINE ASPARTATE\AMPHETAMINE SULFATE\DEXTROAMPHETAMINE SACCHARATE\DEXTROAMPHETAMINE SULFATE
     Indication: Product used for unknown indication
  8. ZYRTEC                             /00884302/ [Concomitant]
     Indication: Product used for unknown indication
  9. AZELASTINE W/FLUTICASONE [Concomitant]
  10. ACETAMINOPHEN [Concomitant]
     Active Substance: ACETAMINOPHEN
     Indication: Product used for unknown indication
  11. VITAMIN D                          /00107901/ [Concomitant]
     Indication: Product used for unknown indication
  12. SYMBICORT [Concomitant]
     Active Substance: BUDESONIDE\FORMOTEROL FUMARATE DIHYDRATE
     Indication: Product used for unknown indication

REACTIONS (4)
  - Influenza [Unknown]
  - Product dose omission issue [Unknown]
  - Intentional product use issue [Unknown]
  - Product use in unapproved indication [Unknown]
